FAERS Safety Report 23508688 (Version 2)
Quarter: 2024Q4

REPORT INFORMATION
  Report Type: Report from Study
  Country: DE (occurrence: DE)
  Receive Date: 20240209
  Receipt Date: 20241204
  Transmission Date: 20250115
  Serious: Yes (Hospitalization)
  Sender: ABBVIE
  Company Number: DE-ABBVIE-5627724

PATIENT
  Age: 63 Year
  Sex: Female
  Weight: 67 kg

DRUGS (1)
  1. SKYRIZI [Suspect]
     Active Substance: RISANKIZUMAB-RZAA
     Indication: Psoriasis
     Route: 058
     Dates: start: 20230307

REACTIONS (8)
  - Hepatic steatosis [Unknown]
  - Hepatic steatosis [Unknown]
  - Psoriasis [Unknown]
  - Transaminases increased [Unknown]
  - Fatigue [Unknown]
  - Serum ferritin increased [Unknown]
  - Transferrin saturation increased [Unknown]
  - Dermatitis [Unknown]

NARRATIVE: CASE EVENT DATE: 20230501
